FAERS Safety Report 18309957 (Version 1)
Quarter: 2020Q3

REPORT INFORMATION
  Report Type: Spontaneous
  Country: US (occurrence: US)
  Receive Date: 20200924
  Receipt Date: 20200924
  Transmission Date: 20201103
  Serious: Yes (Hospitalization)
  Sender: FDA-Public Use
  Company Number: US-FARMAPROD-202007-0984

PATIENT
  Sex: Female

DRUGS (15)
  1. CARBAMAZEPINE. [Concomitant]
     Active Substance: CARBAMAZEPINE
     Dosage: EXTENDED RELEASE TABLET
  2. QUDEXY XR [Concomitant]
     Active Substance: TOPIRAMATE
     Dosage: CAPSULE SPR 24
  3. OXERVATE [Suspect]
     Active Substance: CENEGERMIN-BKBJ
     Route: 047
     Dates: start: 202008
  4. DULOXETINE HCL [Concomitant]
     Active Substance: DULOXETINE HYDROCHLORIDE
     Dosage: DELAY RELEASE TABLET
  5. SYNTHROID [Concomitant]
     Active Substance: LEVOTHYROXINE SODIUM
  6. OXERVATE [Suspect]
     Active Substance: CENEGERMIN-BKBJ
     Indication: NEUROTROPHIC KERATOPATHY
     Route: 047
     Dates: start: 20200529, end: 202008
  7. RESTASIS [Concomitant]
     Active Substance: CYCLOSPORINE
  8. MONTELUKAST SODIUM. [Concomitant]
     Active Substance: MONTELUKAST SODIUM
  9. ACICLOVIR [Concomitant]
     Active Substance: ACYCLOVIR
  10. AZELASTINE/FLUTICASONE [Concomitant]
     Active Substance: AZELASTINE HYDROCHLORIDE\FLUTICASONE PROPIONATE
  11. OSPHENA [Concomitant]
     Active Substance: OSPEMIFENE
  12. BACLOFEN. [Concomitant]
     Active Substance: BACLOFEN
  13. DORZOLAMIDE/TIMOLOL [Concomitant]
     Active Substance: DORZOLAMIDE\TIMOLOL
  14. SIMVASTATIN. [Concomitant]
     Active Substance: SIMVASTATIN
  15. XANAX [Concomitant]
     Active Substance: ALPRAZOLAM

REACTIONS (3)
  - Surgery [Unknown]
  - Eye pain [Unknown]
  - Dry eye [Not Recovered/Not Resolved]
